FAERS Safety Report 23717084 (Version 3)
Quarter: 2024Q2

REPORT INFORMATION
  Report Type: Report from Study
  Country: CZ (occurrence: CZ)
  Receive Date: 20240408
  Receipt Date: 20240513
  Transmission Date: 20240716
  Serious: Yes (Hospitalization, Disabling, Other)
  Sender: FDA-Public Use
  Company Number: CZ-ABBVIE-5708808

PATIENT
  Age: 68 Year
  Sex: Male
  Weight: 59 kg

DRUGS (6)
  1. CARBIDOPA\LEVODOPA [Suspect]
     Active Substance: CARBIDOPA\LEVODOPA
     Indication: Parkinson^s disease
     Dosage: MORNING DOSE 11 ML, CONTINUOUS DOSE 4.8 ML/HOUR, EXTRA DOSE 2 ML?FORM STRENGTH: 20 MILLIGRAM/MILL...
     Route: 050
     Dates: start: 20230215
  2. CARBIDOPA\LEVODOPA [Suspect]
     Active Substance: CARBIDOPA\LEVODOPA
  3. SINEPAR [Concomitant]
     Indication: Prophylaxis
     Dosage: FORM STRENGTH: 200 MILLIGRAM, FREQUENCY TEXT: 0-0-0-1
     Route: 048
     Dates: start: 20230215
  4. QUETIAPINE FUMARATE [Concomitant]
     Active Substance: QUETIAPINE FUMARATE
     Indication: Prophylaxis
     Dosage: FORM STRENGTH: 25 MILLIGRAM, FREQUENCY TEXT: 0-0-2
     Route: 048
     Dates: start: 20230315
  5. FOLIC ACID [Concomitant]
     Active Substance: FOLIC ACID
     Indication: Nervous system disorder prophylaxis
     Dosage: FORM STRENGTH: 10 MILLIGRAM, FREQUENCY TEXT: 1-0-0
     Route: 048
     Dates: start: 20230215
  6. B komplex [Concomitant]
     Indication: Nervous system disorder prophylaxis
     Dosage: FREQUENCY TEXT: 1-0-0
     Route: 048
     Dates: start: 20230215

REACTIONS (6)
  - Embedded device [Recovering/Resolving]
  - Ileus [Recovering/Resolving]
  - Pneumonitis [Unknown]
  - Bezoar [Recovering/Resolving]
  - Secretion discharge [Unknown]
  - C-reactive protein increased [Unknown]

NARRATIVE: CASE EVENT DATE: 20240314
